FAERS Safety Report 5714852-6 (Version None)
Quarter: 2008Q2

REPORT INFORMATION
  Report Type: 
  Country: None (occurrence: None)
  Receive Date: 20080423
  Receipt Date: 20070411
  Transmission Date: 20081010
  Serious: No
  Sender: FDA-Public Use
  Company Number: US-BAYER-US-2007-012835

PATIENT

DRUGS (1)
  1. LEUKINE [Suspect]
     Dates: start: 20070411, end: 20070411

REACTIONS (1)
  - INCORRECT ROUTE OF DRUG ADMINISTRATION [None]
